FAERS Safety Report 13880836 (Version 1)
Quarter: 2017Q3

REPORT INFORMATION
  Report Type: Spontaneous
  Country: US (occurrence: US)
  Receive Date: 20170818
  Receipt Date: 20170818
  Transmission Date: 20171127
  Serious: Yes (Other)
  Sender: FDA-Public Use
  Company Number: US-PFIZER INC-2003174061US

PATIENT
  Sex: Female

DRUGS (2)
  1. PITOCIN [Concomitant]
     Active Substance: OXYTOCIN
     Dosage: UNK
     Dates: start: 20030704, end: 20030704
  2. CYTOTEC [Suspect]
     Active Substance: MISOPROSTOL
     Indication: INDUCED LABOUR
     Dosage: 100 UG, SINGLE
     Route: 065
     Dates: start: 20030704, end: 20030704

REACTIONS (3)
  - Uterine rupture [Unknown]
  - Uterine haemorrhage [Unknown]
  - Loss of consciousness [Unknown]

NARRATIVE: CASE EVENT DATE: 20030704
